FAERS Safety Report 5061821-8 (Version None)
Quarter: 2006Q3

REPORT INFORMATION
  Report Type: 
  Country: None (occurrence: None)
  Receive Date: 20060703
  Receipt Date: 20060130
  Transmission Date: 20061208
  Serious: No
  Sender: FDA-Public Use
  Company Number: 2006S1000918

PATIENT
  Age: 23 Year
  Sex: Male
  Weight: 81.6475 kg

DRUGS (11)
  1. CLOZAPINE [Suspect]
     Indication: BIPOLAR DISORDER
     Dosage: SEE IMAGE
     Route: 048
     Dates: start: 20050830
  2. CLOZAPINE [Suspect]
     Indication: SCHIZOAFFECTIVE DISORDER
     Dosage: SEE IMAGE
     Route: 048
     Dates: start: 20050830
  3. CLOZAPINE [Suspect]
     Indication: BIPOLAR DISORDER
     Dosage: SEE IMAGE
     Route: 048
     Dates: start: 20050830
  4. CLOZAPINE [Suspect]
     Indication: SCHIZOAFFECTIVE DISORDER
     Dosage: SEE IMAGE
     Route: 048
     Dates: start: 20050830
  5. BENZTROPINE MESYLATE [Concomitant]
  6. GLYCERYL TRINITRATE [Concomitant]
  7. PROPRANOLOL [Concomitant]
  8. HYDROCHLORIDE [Concomitant]
  9. LANSOPRAZOLE [Concomitant]
  10. TRAZODONE HCL [Concomitant]
  11. RISPERIDONE [Concomitant]

REACTIONS (1)
  - GRANULOCYTOPENIA [None]
